FAERS Safety Report 4516368-1 (Version None)
Quarter: 2004Q4

REPORT INFORMATION
  Report Type: 
  Country: None (occurrence: None)
  Receive Date: 20041202
  Receipt Date: 20040621
  Transmission Date: 20050328
  Serious: No
  Sender: FDA-Public Use
  Company Number: US-GLAXOSMITHKLINE-A0515368A

PATIENT
  Age: 2 Year
  Sex: Male

DRUGS (2)
  1. AUGMENTIN ES-600 [Suspect]
     Indication: EAR INFECTION
     Dosage: 2TSP TWICE PER DAY
     Route: 048
     Dates: start: 20040616
  2. NO CONCURRENT MEDICATION [Concomitant]

REACTIONS (2)
  - DERMATITIS DIAPER [None]
  - DIARRHOEA [None]
